FAERS Safety Report 8815073 (Version 2)
Quarter: 2015Q1

REPORT INFORMATION
  Report Type: Report from Study
  Country: US (occurrence: US)
  Receive Date: 20120928
  Receipt Date: 20150304
  Transmission Date: 20150721
  Serious: Yes (Death)
  Sender: FDA-Public Use
  Company Number: US-ROCHE-1129538

PATIENT
  Sex: Male

DRUGS (17)
  1. TAXOL [Concomitant]
     Active Substance: PACLITAXEL
     Route: 065
     Dates: start: 200812, end: 200906
  2. LIPITOR [Concomitant]
     Active Substance: ATORVASTATIN CALCIUM
     Route: 065
  3. GEMZAR [Concomitant]
     Active Substance: GEMCITABINE HYDROCHLORIDE
     Route: 065
  4. COLACE [Concomitant]
     Active Substance: DOCUSATE SODIUM
     Route: 065
  5. MIRALAX [Concomitant]
     Active Substance: POLYETHYLENE GLYCOL 3350
     Dosage: ONE SCOOP
     Route: 065
  6. XANAX [Concomitant]
     Active Substance: ALPRAZOLAM
  7. LOVENOX [Concomitant]
     Active Substance: ENOXAPARIN SODIUM
     Route: 065
  8. ALIMTA [Concomitant]
     Active Substance: PEMETREXED DISODIUM
     Route: 065
     Dates: start: 20090616
  9. TAXOTERE [Concomitant]
     Active Substance: DOCETAXEL
     Route: 065
  10. HERCEPTIN [Suspect]
     Active Substance: TRASTUZUMAB
     Indication: OESOPHAGEAL CARCINOMA
     Route: 065
     Dates: start: 20090811
  11. HERCEPTIN [Suspect]
     Active Substance: TRASTUZUMAB
     Indication: LYMPHOMA
     Route: 065
     Dates: start: 20090901
  12. DECADRON [Concomitant]
     Active Substance: DEXAMETHASONE
  13. ALOXI [Concomitant]
     Active Substance: PALONOSETRON HYDROCHLORIDE
     Route: 065
  14. ZOLOFT [Concomitant]
     Active Substance: SERTRALINE HYDROCHLORIDE
  15. BEVACIZUMAB [Suspect]
     Active Substance: BEVACIZUMAB
     Indication: PRODUCT USED FOR UNKNOWN INDICATION
     Route: 065
     Dates: start: 200812, end: 200906
  16. TARCEVA [Suspect]
     Active Substance: ERLOTINIB HYDROCHLORIDE
     Indication: PRODUCT USED FOR UNKNOWN INDICATION
     Route: 065
     Dates: start: 200812, end: 200906
  17. OXYCONTIN [Concomitant]
     Active Substance: OXYCODONE HYDROCHLORIDE
     Route: 065

REACTIONS (12)
  - Weight decreased [Unknown]
  - Anaemia [Unknown]
  - Nausea [Unknown]
  - Fatigue [Unknown]
  - Diarrhoea [Unknown]
  - Arthralgia [Unknown]
  - Depression [Unknown]
  - Poor quality sleep [Unknown]
  - Epistaxis [Unknown]
  - Constipation [Unknown]
  - Dyspnoea [Unknown]
  - Death [Fatal]
